FAERS Safety Report 4617079-4 (Version None)
Quarter: 2005Q1

REPORT INFORMATION
  Report Type: 
  Country: None (occurrence: None)
  Receive Date: 20050323
  Receipt Date: 20030724
  Transmission Date: 20050727
  Serious: Yes (Disabling)
  Sender: FDA-Public Use
  Company Number: US-ROCHE-343474

PATIENT
  Age: 42 Year
  Sex: Male
  Weight: 111.1 kg

DRUGS (2)
  1. LARIAM [Suspect]
     Indication: MALARIA PROPHYLAXIS
     Route: 048
     Dates: start: 20010705
  2. ZOLOFT [Concomitant]
     Indication: DEPRESSION
     Route: 065

REACTIONS (92)
  - ABNORMAL DREAMS [None]
  - ACROCHORDON [None]
  - ADJUSTMENT DISORDER WITH DEPRESSED MOOD [None]
  - AFFECTIVE DISORDER [None]
  - AGGRESSION [None]
  - AMNESIA [None]
  - ANGINA PECTORIS [None]
  - ANGIOTENSIN CONVERTING ENZYME INCREASED [None]
  - ANXIETY [None]
  - ARTHRALGIA [None]
  - ASTHMA [None]
  - BALANCE DISORDER [None]
  - BIPOLAR DISORDER [None]
  - BLOOD CHOLESTEROL INCREASED [None]
  - BLOOD CREATINE PHOSPHOKINASE INCREASED [None]
  - BLOOD GLUCOSE INCREASED [None]
  - BLOOD TRIGLYCERIDES INCREASED [None]
  - BODY TEMPERATURE INCREASED [None]
  - BRONCHITIS [None]
  - BRONCHOSPASM [None]
  - CARDIAC MURMUR [None]
  - CHEST DISCOMFORT [None]
  - CLUMSINESS [None]
  - CONFUSIONAL STATE [None]
  - CONSTIPATION [None]
  - CONTUSION [None]
  - COORDINATION ABNORMAL [None]
  - COUGH [None]
  - DEHYDRATION [None]
  - DEPRESSION [None]
  - DIARRHOEA [None]
  - DIASTOLIC DYSFUNCTION [None]
  - DISCOMFORT [None]
  - DRY EYE [None]
  - DRY MOUTH [None]
  - DRY SKIN [None]
  - DYSPNOEA [None]
  - EMBOLISM [None]
  - EXERCISE TOLERANCE DECREASED [None]
  - EYE PRURITUS [None]
  - FATIGUE [None]
  - GASTROINTESTINAL DISORDER [None]
  - GASTROOESOPHAGEAL REFLUX DISEASE [None]
  - HAEMORRHOIDS [None]
  - HEADACHE [None]
  - HYPERTENSION [None]
  - INSOMNIA [None]
  - JAW DISORDER [None]
  - LACRIMATION INCREASED [None]
  - LISTLESS [None]
  - LOW DENSITY LIPOPROTEIN INCREASED [None]
  - MAJOR DEPRESSION [None]
  - MEMORY IMPAIRMENT [None]
  - MITRAL VALVE PROLAPSE [None]
  - MYALGIA [None]
  - NASAL CONGESTION [None]
  - NERVOUS SYSTEM DISORDER [None]
  - NOCTURIA [None]
  - OEDEMA [None]
  - ORAL MUCOSAL DISORDER [None]
  - PERIPHERAL SENSORY NEUROPATHY [None]
  - PHOTOSENSITIVITY REACTION [None]
  - POSTNASAL DRIP [None]
  - PRODUCTIVE COUGH [None]
  - PSYCHOTIC DISORDER [None]
  - RASH [None]
  - RASH SCALY [None]
  - RECTAL HAEMORRHAGE [None]
  - RESTRICTIVE PULMONARY DISEASE [None]
  - RHINITIS [None]
  - SARCOIDOSIS [None]
  - SCHIZOAFFECTIVE DISORDER [None]
  - SCRATCH [None]
  - SINUS TACHYCARDIA [None]
  - SINUSITIS [None]
  - SJOGREN'S SYNDROME [None]
  - SKIN DISORDER [None]
  - SLEEP APNOEA SYNDROME [None]
  - SNORING [None]
  - SOMNOLENCE [None]
  - SPUTUM DISCOLOURED [None]
  - TOTAL CHOLESTEROL/HDL RATIO DECREASED [None]
  - TOTAL LUNG CAPACITY DECREASED [None]
  - TREMOR [None]
  - UPPER RESPIRATORY TRACT INFECTION [None]
  - VENTRICULAR HYPERTROPHY [None]
  - VESTIBULAR DISORDER [None]
  - VIRAL INFECTION [None]
  - VISUAL DISTURBANCE [None]
  - VITILIGO [None]
  - WEIGHT INCREASED [None]
  - WHEEZING [None]
